FAERS Safety Report 24095291 (Version 1)
Quarter: 2024Q3

REPORT INFORMATION
  Report Type: Spontaneous
  Country: IT (occurrence: IT)
  Receive Date: 20240716
  Receipt Date: 20240716
  Transmission Date: 20241016
  Serious: Yes (Hospitalization)
  Sender: MYLAN
  Company Number: IT-MYLANLABS-2024M1064061

PATIENT
  Age: 10 Day

DRUGS (4)
  1. FLECAINIDE [Suspect]
     Active Substance: FLECAINIDE
     Indication: Atrial tachycardia
     Dosage: UNK
     Route: 065
  2. AMIODARONE [Suspect]
     Active Substance: AMIODARONE
     Indication: Atrial tachycardia
     Dosage: UNK
     Route: 065
  3. PROPRANOLOL [Suspect]
     Active Substance: PROPRANOLOL HYDROCHLORIDE
     Indication: Atrial tachycardia
     Dosage: UNK
     Route: 065
  4. DIGITALIS [Concomitant]
     Active Substance: DIGITALIS
     Indication: Atrial tachycardia
     Dosage: UNK
     Route: 065

REACTIONS (2)
  - Drug ineffective [Unknown]
  - Off label use [Unknown]
